FAERS Safety Report 8189880-4 (Version None)
Quarter: 2012Q1

REPORT INFORMATION
  Report Type: 
  Country: None (occurrence: None)
  Receive Date: 20120221
  Receipt Date: 20120117
  Transmission Date: 20120608
  Serious: No
  Sender: FDA-Public Use
  Company Number: 1000027203

PATIENT
  Age: 61 Year
  Sex: Male

DRUGS (7)
  1. BENTYL (DICYCLOVERINE HYDROCHLORIDE) (DICYCLOVERINE HYDROCHLORIDE) [Concomitant]
  2. AMLODIPINE [Concomitant]
  3. VIIBRYD [Suspect]
     Indication: DEPRESSION
     Dosage: 10 MG (10 MG, 1 IN 1 D), ORAL
     Route: 048
     Dates: start: 20120113
  4. DIAZEPAM [Concomitant]
  5. NADOLOL (NADOLOL) (NADOLOL) [Concomitant]
  6. ARMOUR THYROID (THYROID) (THYROID) [Concomitant]
  7. LORATAB (LORATADINE) (LORATADINE) [Concomitant]

REACTIONS (1)
  - CRYING [None]
